FAERS Safety Report 20201627 (Version 2)
Quarter: 2021Q4

REPORT INFORMATION
  Report Type: Spontaneous
  Country: CZ (occurrence: CZ)
  Receive Date: 20211217
  Receipt Date: 20211228
  Transmission Date: 20220303
  Serious: Yes (Other)
  Sender: FDA-Public Use
  Company Number: CZ-STADA-238529

PATIENT
  Age: 75 Year
  Sex: Male

DRUGS (4)
  1. HYDROXYUREA [Suspect]
     Active Substance: HYDROXYUREA
     Indication: Myeloproliferative neoplasm
     Route: 065
  2. HYDROXYUREA [Suspect]
     Active Substance: HYDROXYUREA
     Indication: Thrombocytosis
  3. ANAGRELIDE [Suspect]
     Active Substance: ANAGRELIDE
     Indication: Thrombocytosis
     Route: 065
     Dates: start: 2008
  4. ANAGRELIDE [Suspect]
     Active Substance: ANAGRELIDE
     Indication: Myeloproliferative neoplasm

REACTIONS (1)
  - Anaemia [Recovered/Resolved]
